FAERS Safety Report 8742443 (Version 3)
Quarter: 2013Q1

REPORT INFORMATION
  Report Type: Spontaneous
  Country: US (occurrence: US)
  Receive Date: 20120824
  Receipt Date: 20130314
  Transmission Date: 20140127
  Serious: Yes (Other)
  Sender: FDA-Public Use
  Company Number: US-US-EMD SERONO, INC.-7155468

PATIENT
  Sex: Female
  Weight: 80 kg

DRUGS (10)
  1. REBIF [Suspect]
     Indication: MULTIPLE SCLEROSIS
     Route: 058
     Dates: start: 20110315
  2. ALEVE [Concomitant]
     Indication: PREMEDICATION
  3. PHENERGAN [Concomitant]
     Indication: PREMEDICATION
  4. PROVENTIL [Concomitant]
     Indication: ASTHMA
  5. CYMBALTA [Concomitant]
     Indication: PAIN
  6. OMEPRAZOLE [Concomitant]
     Indication: GASTROOESOPHAGEAL REFLUX DISEASE
  7. ACYCLOVIR [Concomitant]
     Indication: GENITAL HERPES
  8. CRESTOR [Concomitant]
     Indication: HYPERLIPIDAEMIA
  9. ZOLPIDEM [Concomitant]
     Indication: PRODUCT USED FOR UNKNOWN INDICATION
  10. CLONAZEPAM [Concomitant]
     Indication: ANXIETY

REACTIONS (5)
  - Basal cell carcinoma [Not Recovered/Not Resolved]
  - Eye infection staphylococcal [Unknown]
  - Cataract [Unknown]
  - Injection site rash [Unknown]
  - Injection site erythema [Unknown]
